FAERS Safety Report 25080408 (Version 2)
Quarter: 2025Q1

REPORT INFORMATION
  Report Type: Spontaneous
  Country: FR (occurrence: FR)
  Receive Date: 20250315
  Receipt Date: 20250328
  Transmission Date: 20250408
  Serious: Yes (Death)
  Sender: ROCHE
  Company Number: FR-ROCHE-10000123958

PATIENT
  Age: 50 Year
  Sex: Male

DRUGS (2)
  1. GLOFITAMAB [Suspect]
     Active Substance: GLOFITAMAB
     Indication: Diffuse large B-cell lymphoma refractory
     Route: 042
     Dates: start: 20241014
  2. OBINUTUZUMAB [Suspect]
     Active Substance: OBINUTUZUMAB
     Indication: Diffuse large B-cell lymphoma
     Route: 065

REACTIONS (2)
  - Inappropriate schedule of product administration [Unknown]
  - Disease progression [Fatal]
